FAERS Safety Report 6876389-0 (Version None)
Quarter: 2010Q3

REPORT INFORMATION
  Report Type: 
  Country: None (occurrence: None)
  Receive Date: 20100727
  Receipt Date: 20070712
  Transmission Date: 20110219
  Serious: Yes (Hospitalization)
  Sender: FDA-Public Use
  Company Number: US-PFIZER INC-2006111999

PATIENT
  Sex: Male
  Weight: 90.7 kg

DRUGS (6)
  1. CELEBREX [Suspect]
     Indication: BACK PAIN
     Route: 048
     Dates: start: 19991101
  2. VIOXX [Suspect]
     Indication: BACK PAIN
     Route: 048
     Dates: start: 20010611
  3. IBUPROFEN TABLETS [Concomitant]
     Indication: PAIN
     Dates: start: 20020221
  4. ACCUPRIL [Concomitant]
     Indication: HYPERTENSION
     Dates: start: 20020207, end: 20050206
  5. TOPROL-XL [Concomitant]
     Dates: start: 20020207, end: 20050408
  6. NORVASC [Concomitant]
     Indication: CARDIAC DISORDER
     Dates: start: 19990109, end: 20050306

REACTIONS (3)
  - CEREBROVASCULAR ACCIDENT [None]
  - MYOCARDIAL INFARCTION [None]
  - TRANSIENT ISCHAEMIC ATTACK [None]
